FAERS Safety Report 14887231 (Version 2)
Quarter: 2018Q2

REPORT INFORMATION
  Report Type: Spontaneous
  Country: PR (occurrence: PR)
  Receive Date: 20180513
  Receipt Date: 20180618
  Transmission Date: 20180711
  Serious: Yes (Death, Hospitalization)
  Sender: FDA-Public Use
  Company Number: PR-JNJFOC-20180500249

PATIENT
  Age: 69 Year
  Sex: Male

DRUGS (1)
  1. XARELTO [Suspect]
     Active Substance: RIVAROXABAN
     Indication: DEEP VEIN THROMBOSIS
     Route: 048
     Dates: start: 20131227, end: 20140402

REACTIONS (3)
  - Fall [Unknown]
  - Drug prescribing error [Unknown]
  - Haematoma [Unknown]

NARRATIVE: CASE EVENT DATE: 20131227
